FAERS Safety Report 5073462-7 (Version None)
Quarter: 2006Q3

REPORT INFORMATION
  Report Type: 
  Country: None (occurrence: None)
  Receive Date: 20060717
  Receipt Date: 20051115
  Transmission Date: 20061208
  Serious: No
  Sender: FDA-Public Use
  Company Number: 2005002228

PATIENT
  Age: 57 Year
  Sex: Female

DRUGS (3)
  1. TARCEVA [Suspect]
     Indication: NON-SMALL CELL LUNG CANCER
     Dosage: 150 MG (QD), ORAL
     Route: 048
     Dates: start: 20050815
  2. TAXOTERE [Concomitant]
  3. CARBOPLATIN [Concomitant]

REACTIONS (5)
  - NAIL BED INFLAMMATION [None]
  - NAIL BED TENDERNESS [None]
  - NAIL DISCOLOURATION [None]
  - ONYCHALGIA [None]
  - ONYCHOCLASIS [None]
